FAERS Safety Report 18857967 (Version 1)
Quarter: 2021Q1

REPORT INFORMATION
  Report Type: Spontaneous
  Country: CH (occurrence: CH)
  Receive Date: 20210208
  Receipt Date: 20210208
  Transmission Date: 20210420
  Serious: Yes (Hospitalization, Other)
  Sender: FDA-Public Use
  Company Number: CH-MICRO LABS LIMITED-ML2021-00348

PATIENT
  Age: 62 Year
  Sex: Male

DRUGS (14)
  1. AMOXICILLIN/CLAVULANIC ACID [Suspect]
     Active Substance: AMOXICILLIN\CLAVULANIC ACID
     Indication: PNEUMONIA VIRAL
  2. PANTOPRAZOLE [Suspect]
     Active Substance: PANTOPRAZOLE
  3. HYDROXYCHLOROQUINE [Suspect]
     Active Substance: HYDROXYCHLOROQUINE
     Indication: COVID-19
  4. TIGECYCLINE. [Concomitant]
     Active Substance: TIGECYCLINE
  5. PIPERACILLIN/TAZOBACTAM [Suspect]
     Active Substance: PIPERACILLIN SODIUM\TAZOBACTAM SODIUM
  6. ACICLOVIR [Concomitant]
     Active Substance: ACYCLOVIR
  7. PREDNISOLONE. [Concomitant]
     Active Substance: PREDNISOLONE
  8. IMIPENEM [Suspect]
     Active Substance: IMIPENEM
  9. AMIODARONE [Suspect]
     Active Substance: AMIODARONE
  10. MEROPENEM. [Suspect]
     Active Substance: MEROPENEM
  11. VORICONAZOLE. [Concomitant]
     Active Substance: VORICONAZOLE
  12. VANCOMYCIN [Concomitant]
     Active Substance: VANCOMYCIN
     Indication: HYPERLIPIDAEMIA
  13. ATORVASTATIN [Concomitant]
     Active Substance: ATORVASTATIN
     Indication: HYPERLIPIDAEMIA
  14. DAPTOMYCIN. [Concomitant]
     Active Substance: DAPTOMYCIN
     Indication: HYPERLIPIDAEMIA

REACTIONS (6)
  - Tubulointerstitial nephritis [Recovering/Resolving]
  - Acute kidney injury [Recovering/Resolving]
  - Atrial fibrillation [Unknown]
  - Rash maculo-papular [Recovering/Resolving]
  - Ileus paralytic [Unknown]
  - Haemolysis [Recovering/Resolving]
